FAERS Safety Report 9437488 (Version 2)
Quarter: 2013Q3

REPORT INFORMATION
  Report Type: Spontaneous
  Country: KR (occurrence: KR)
  Receive Date: 20130802
  Receipt Date: 20130813
  Transmission Date: 20140515
  Serious: Yes (Hospitalization)
  Sender: FDA-Public Use
  Company Number: KR-SANOFI-AVENTIS-2013SA076979

PATIENT
  Age: 72 Year
  Sex: Male

DRUGS (4)
  1. OXALIPLATIN [Suspect]
     Indication: PRODUCT USED FOR UNKNOWN INDICATION
     Dosage: ON DAY 1
     Route: 042
  2. FLUOROURACIL [Concomitant]
     Dosage: DAY 1
     Route: 040
  3. FLUOROURACIL [Concomitant]
     Dosage: 22 H CONTINOUS INFUSION ON DAY 1 AND 2, EVERY OTHER WEEK
  4. LEUCOVORIN [Concomitant]
     Dosage: 22 H CONTINOUS INFUSION ON DAY 1 AND 2, EVERY OTHER WEEK

REACTIONS (4)
  - Torsade de pointes [Recovered/Resolved]
  - Long QT syndrome [Recovered/Resolved]
  - Syncope [Recovered/Resolved]
  - Hyperhidrosis [Recovered/Resolved]
